FAERS Safety Report 5029123-3 (Version None)
Quarter: 2006Q2

REPORT INFORMATION
  Report Type: 
  Country: None (occurrence: None)
  Receive Date: 20060613
  Receipt Date: 20060530
  Transmission Date: 20061013
  Serious: Yes (Death, Other)
  Sender: FDA-Public Use
  Company Number: MEDI-0004581

PATIENT
  Age: 69 Year
  Sex: Male

DRUGS (1)
  1. ETHYOL [Suspect]
     Indication: RADIOTHERAPY
     Dosage: INTRAVENOUS (NOT OTHERWISE
     Dates: start: 20060324, end: 20060505

REACTIONS (6)
  - CEREBRAL INFARCTION [None]
  - MUCOSAL INFLAMMATION [None]
  - NEUTROPENIA [None]
  - PNEUMONIA ASPIRATION [None]
  - SKIN EXFOLIATION [None]
  - THROMBOCYTOPENIA [None]
